FAERS Safety Report 24888758 (Version 1)
Quarter: 2025Q1

REPORT INFORMATION
  Report Type: Other
  Country: GB (occurrence: GB)
  Receive Date: 20250127
  Receipt Date: 20250127
  Transmission Date: 20250409
  Serious: Yes (Hospitalization, Other)
  Sender: APPCO PHARMA LLC
  Company Number: GB-Appco Pharma LLC-2169865

PATIENT
  Age: 46 Year
  Sex: Female

DRUGS (7)
  1. BACLOFEN [Suspect]
     Active Substance: BACLOFEN
     Indication: Product used for unknown indication
  2. ALCOHOL [Suspect]
     Active Substance: ALCOHOL
  3. LANSOPRAZOLE [Concomitant]
     Active Substance: LANSOPRAZOLE
  4. NAPROXEN [Concomitant]
     Active Substance: NAPROXEN
  5. ESTRADIOL [Concomitant]
     Active Substance: ESTRADIOL
  6. ROPINIROLE [Concomitant]
     Active Substance: ROPINIROLE
  7. SERTRALINE [Concomitant]
     Active Substance: SERTRALINE HYDROCHLORIDE

REACTIONS (3)
  - Intentional overdose [Unknown]
  - Hypotonia [Unknown]
  - Acute psychosis [Recovered/Resolved]
